FAERS Safety Report 6608784-9 (Version None)
Quarter: 2010Q1

REPORT INFORMATION
  Report Type: 
  Country: None (occurrence: None)
  Receive Date: 20100301
  Receipt Date: 20100215
  Transmission Date: 20100710
  Serious: Yes (Death)
  Sender: FDA-Public Use
  Company Number: US-JNJFOC-20100209412

PATIENT
  Age: 55 Year
  Sex: Female
  Weight: 72.58 kg

DRUGS (5)
  1. ACETAMINOPHEN [Suspect]
  2. ACETAMINOPHEN [Suspect]
     Indication: SUICIDE ATTEMPT
  3. FLUVOXAMINE [Interacting]
     Indication: SUICIDE ATTEMPT
  4. DURAGESIC-100 [Concomitant]
  5. NAPROXEN [Concomitant]

REACTIONS (3)
  - COMPLETED SUICIDE [None]
  - DRUG INTERACTION [None]
  - MULTIPLE DRUG OVERDOSE INTENTIONAL [None]
